FAERS Safety Report 15584836 (Version 2)
Quarter: 2018Q4

REPORT INFORMATION
  Report Type: Report from Study
  Country: JP (occurrence: JP)
  Receive Date: 20181105
  Receipt Date: 20181116
  Transmission Date: 20190205
  Serious: Yes (Death)
  Sender: FDA-Public Use
  Company Number: JP-BAYER-2018-198907

PATIENT
  Age: 11 Year
  Sex: Male
  Weight: 25 kg

DRUGS (22)
  1. MEROPENEM. [Concomitant]
     Active Substance: MEROPENEM
  2. ANTITHROMBIN III G [Concomitant]
     Dosage: DAILY DOSE 900 DF
     Dates: start: 20180906, end: 20180906
  3. POLYGLOBIN [Concomitant]
     Active Substance: HUMAN IMMUNOGLOBULIN G
     Dosage: DAILY DOSE 15 G
     Dates: start: 20180907, end: 20180907
  4. CIPROXAN [Suspect]
     Active Substance: CIPROFLOXACIN
     Indication: ACUTE BIPHENOTYPIC LEUKAEMIA
  5. DOBUTAMINE [Concomitant]
     Active Substance: DOBUTAMINE\DOBUTAMINE HYDROCHLORIDE
     Dosage: DAILY DOSE 300 MG
     Dates: start: 20180906, end: 20180908
  6. DOPAMINE [Concomitant]
     Active Substance: DOPAMINE\DOPAMINE HYDROCHLORIDE
     Dosage: DAILY DOSE 300 MG
     Dates: start: 20180906, end: 20180908
  7. KAYTWO [Concomitant]
     Active Substance: MENATETRENONE
     Dosage: DAILY DOSE 20 MG
     Dates: start: 20180907, end: 20180907
  8. ALBUMIN [Concomitant]
     Active Substance: ALBUMIN HUMAN
     Dosage: DAILY DOSE 250 ML
     Dates: start: 20180906, end: 20180908
  9. FILGRASTIM [Concomitant]
     Active Substance: FILGRASTIM
     Dosage: DAILY DOSE 200 ?G
     Dates: start: 20180904, end: 20180907
  10. FENTANYL. [Concomitant]
     Active Substance: FENTANYL
     Dosage: DAILY DOSE 600 ?G
     Dates: start: 20180903, end: 20180908
  11. CIPROXAN [Suspect]
     Active Substance: CIPROFLOXACIN
     Indication: PSEUDOMONAL SEPSIS
     Dosage: DAILY DOSE 750 MG
     Route: 041
     Dates: start: 20180906, end: 20180908
  12. VANCOMYCIN [Concomitant]
     Active Substance: VANCOMYCIN
  13. GASTER [Concomitant]
     Active Substance: FAMOTIDINE
     Dosage: DAILY DOSE 20 MG
     Dates: start: 20180906, end: 20180908
  14. MIDAZOLAM [Concomitant]
     Active Substance: MIDAZOLAM HYDROCHLORIDE
     Dosage: DAILY DOSE 60 MG
     Dates: start: 20180906, end: 20180907
  15. NORADRENALINE [Concomitant]
     Active Substance: NOREPINEPHRINE
     Dosage: DAILY DOSE 3.6 MG
     Dates: start: 20180907, end: 20180908
  16. PITRESSIN [Concomitant]
     Active Substance: VASOPRESSIN
     Dosage: DAILY DOSE 32 DF
     Dates: start: 20180907, end: 20180908
  17. THROMBOMODULIN ALFA [Concomitant]
     Active Substance: THROMBOMODULIN ALFA
     Dosage: DAILY DOSE 9600 DF
     Dates: start: 20180906, end: 20180907
  18. MEYLON [Concomitant]
     Active Substance: SODIUM BICARBONATE
     Dosage: DAILY DOSE 70 ML
     Dates: start: 20180907, end: 20180908
  19. CORETEC [Concomitant]
     Dosage: DAILY DOSE 3.6 MG
     Dates: start: 20180906, end: 20180907
  20. RAVONAL [Concomitant]
     Active Substance: THIOPENTAL
     Dosage: DAILY DOSE 600 MG
     Dates: start: 20180907, end: 20180908
  21. FUROSEMIDE. [Concomitant]
     Active Substance: FUROSEMIDE
     Dosage: DAILY DOSE 10 MG
     Dates: start: 20180906, end: 20180907
  22. ZOSYN [Concomitant]
     Active Substance: PIPERACILLIN SODIUM\TAZOBACTAM SODIUM

REACTIONS (5)
  - Multiple organ dysfunction syndrome [Fatal]
  - Pseudomonas infection [Fatal]
  - Septic shock [Fatal]
  - Ear pain [None]
  - Otitis media [None]

NARRATIVE: CASE EVENT DATE: 20180907
